FAERS Safety Report 23077407 (Version 4)
Quarter: 2023Q4

REPORT INFORMATION
  Report Type: Spontaneous
  Country: CA (occurrence: CA)
  Receive Date: 20231018
  Receipt Date: 20231121
  Transmission Date: 20240109
  Serious: Yes (Other)
  Sender: FDA-Public Use
  Company Number: CA-CELLTRION INC.-2023CA016116

PATIENT

DRUGS (8)
  1. INFLECTRA [Suspect]
     Active Substance: INFLIXIMAB-DYYB
     Indication: Colitis ulcerative
     Dosage: 700 MG(10 MG/KG), DOSE 1 HOSPITAL START.SIGNED RX YET TO RECEIVE FROM MD,0, 2, 6, THEN EVERY 8 WEEKS
     Route: 042
     Dates: start: 20230804, end: 20230804
  2. INFLECTRA [Suspect]
     Active Substance: INFLIXIMAB-DYYB
     Dosage: 1 DF , UNKNOWN DOSE
     Route: 042
     Dates: start: 20230821, end: 20230821
  3. INFLECTRA [Suspect]
     Active Substance: INFLIXIMAB-DYYB
     Dosage: 400 MG, WEEK 2, 6, THEN EVERY 8 WEEKS
     Route: 042
     Dates: start: 20230821
  4. INFLECTRA [Suspect]
     Active Substance: INFLIXIMAB-DYYB
     Dosage: 400 MG, WEEK 2, 6, THEN EVERY 8 WEEKS
     Route: 042
     Dates: start: 20230918
  5. INFLECTRA [Suspect]
     Active Substance: INFLIXIMAB-DYYB
     Dosage: 400 MG, WEEK 10 DOSE THEN EVERY 8 WEEKS
     Route: 042
     Dates: start: 20231017
  6. MESALAMINE [Concomitant]
     Active Substance: MESALAMINE
     Indication: Colitis ulcerative
     Dosage: UNK, QD
     Route: 048
  7. PREDNISONE [Concomitant]
     Active Substance: PREDNISONE
     Dosage: 1 DF, DOSAGE INFO:  UNKNOWN
     Route: 065
     Dates: start: 20230801
  8. PENTASA [Concomitant]
     Active Substance: MESALAMINE
     Indication: Colitis ulcerative
     Dosage: UNK, MOST NIGHTS

REACTIONS (12)
  - Rectal haemorrhage [Recovered/Resolved]
  - Therapeutic response shortened [Unknown]
  - Anxiety [Not Recovered/Not Resolved]
  - Proctalgia [Not Recovered/Not Resolved]
  - Obsessive-compulsive disorder [Unknown]
  - Back pain [Not Recovered/Not Resolved]
  - Headache [Unknown]
  - Condition aggravated [Not Recovered/Not Resolved]
  - Pain [Not Recovered/Not Resolved]
  - Defaecation urgency [Unknown]
  - Emotional disorder [Unknown]
  - Impaired quality of life [Unknown]

NARRATIVE: CASE EVENT DATE: 20230101
